FAERS Safety Report 7689295-9 (Version None)
Quarter: 2011Q3

REPORT INFORMATION
  Report Type: 
  Country: None (occurrence: None)
  Receive Date: 20110817
  Receipt Date: 20110810
  Transmission Date: 20111222
  Serious: Yes (Other)
  Sender: FDA-Public Use
  Company Number: US-PFIZER INC-2011138701

PATIENT
  Sex: Female

DRUGS (3)
  1. HYDROCHLOROTHIAZIDE [Concomitant]
     Indication: HYPERTENSION
     Dosage: 25 MG, 1X/DAY
  2. TUSSIONEX [Concomitant]
     Indication: BRONCHITIS CHRONIC
     Dosage: UNK, AS NEEDED
  3. DETROL LA [Suspect]
     Indication: URINARY INCONTINENCE
     Dosage: 4 MG, 1X/DAY
     Route: 048
     Dates: start: 20110621, end: 20110622

REACTIONS (6)
  - CONSTIPATION [None]
  - SWELLING FACE [None]
  - ABDOMINAL PAIN [None]
  - EYE SWELLING [None]
  - ABDOMINAL PAIN UPPER [None]
  - DIARRHOEA [None]
